FAERS Safety Report 21622922 (Version 4)
Quarter: 2024Q4

REPORT INFORMATION
  Report Type: Spontaneous
  Country: SI (occurrence: SI)
  Receive Date: 20221121
  Receipt Date: 20241202
  Transmission Date: 20250115
  Serious: Yes (Death, Hospitalization, Other)
  Sender: FRESENIUS KABI
  Company Number: SI-009507513-2210SVN010007

PATIENT
  Age: 69 Year
  Sex: Male

DRUGS (4)
  1. PACLITAXEL [Suspect]
     Active Substance: PACLITAXEL
     Indication: Non-small cell lung cancer
     Dosage: UNK
     Dates: end: 202207
  2. PEMBROLIZUMAB [Suspect]
     Active Substance: PEMBROLIZUMAB
     Indication: Non-small cell lung cancer
     Dosage: 200 MILLIGRAM, Q3W?FOA: SOLUTION FOR INJECTION
     Dates: end: 202207
  3. PEMBROLIZUMAB [Suspect]
     Active Substance: PEMBROLIZUMAB
     Dosage: 200 MILLIGRAM, Q3W?SOLUTION FOR INJECTION
     Dates: end: 20220902
  4. CARBOPLATIN [Suspect]
     Active Substance: CARBOPLATIN
     Indication: Non-small cell lung cancer
     Dosage: UNK
     Dates: end: 202207

REACTIONS (7)
  - Pneumonia [Fatal]
  - Cardiac failure acute [Fatal]
  - Immune-mediated myocarditis [Recovering/Resolving]
  - Coronary artery disease [Recovered/Resolved]
  - Therapy partial responder [Unknown]
  - Atrioventricular block second degree [Unknown]
  - Atrioventricular block first degree [Unknown]

NARRATIVE: CASE EVENT DATE: 20220101
